FAERS Safety Report 19780246 (Version 3)
Quarter: 2022Q2

REPORT INFORMATION
  Report Type: Spontaneous
  Country: US (occurrence: US)
  Receive Date: 20210902
  Receipt Date: 20220617
  Transmission Date: 20220720
  Serious: Yes (Life-Threatening, Hospitalization, Other)
  Sender: FDA-Public Use
  Company Number: US-MLMSERVICE-20210816-3045333-1

PATIENT
  Sex: Female
  Weight: .134 kg

DRUGS (28)
  1. HEPARIN SODIUM [Suspect]
     Active Substance: HEPARIN SODIUM
     Dosage: FREQ:1 MIN;D4
  2. HEPARIN SODIUM [Suspect]
     Active Substance: HEPARIN SODIUM
     Dosage: FREQ:1 MIN;D4
  3. HEPARIN SODIUM [Suspect]
     Active Substance: HEPARIN SODIUM
     Dosage: STANDARD LOADING DOSE OF 100 UNITS/ KG
  4. HEPARIN SODIUM [Suspect]
     Active Substance: HEPARIN SODIUM
     Dosage: D8
  5. HEPARIN SODIUM [Suspect]
     Active Substance: HEPARIN SODIUM
     Dosage: FREQ:1 MIN;D6
  6. HEPARIN SODIUM [Suspect]
     Active Substance: HEPARIN SODIUM
     Dosage: FREQ:1 MIN;D7
  7. HEPARIN SODIUM [Suspect]
     Active Substance: HEPARIN SODIUM
     Dosage: FREQ:1 MIN;D8
  8. HEPARIN SODIUM [Suspect]
     Active Substance: HEPARIN SODIUM
     Dosage: FREQ:1 MIN;D 2
  9. HEPARIN SODIUM [Suspect]
     Active Substance: HEPARIN SODIUM
     Dosage: FREQ:1 MIN;D9
  10. HEPARIN SODIUM [Suspect]
     Active Substance: HEPARIN SODIUM
     Dosage: FREQ:1 MIN;D3
  11. HEPARIN SODIUM [Suspect]
     Active Substance: HEPARIN SODIUM
     Dosage: FREQ:1 MIN;DAY 1
  12. HEPARIN SODIUM [Suspect]
     Active Substance: HEPARIN SODIUM
     Dosage: FREQ:1 MIN;D5
  13. HEPARIN SODIUM [Suspect]
     Active Substance: HEPARIN SODIUM
     Dosage: FREQ:1 MIN;D6
  14. HEPARIN SODIUM [Suspect]
     Active Substance: HEPARIN SODIUM
     Dosage: FREQ:1 MIN;D3
  15. HEPARIN SODIUM [Suspect]
     Active Substance: HEPARIN SODIUM
     Dosage: FREQ:1 MIN;DAY 1
  16. HEPARIN SODIUM [Suspect]
     Active Substance: HEPARIN SODIUM
     Dosage: FREQ:1 MIN;D5
  17. HEPARIN SODIUM [Suspect]
     Active Substance: HEPARIN SODIUM
     Dosage: FREQ:1 MIN;D9
  18. HEPARIN SODIUM [Suspect]
     Active Substance: HEPARIN SODIUM
     Dosage: FREQ:1 MIN;D2
  19. HEPARIN SODIUM [Suspect]
     Active Substance: HEPARIN SODIUM
     Dosage: FREQ:1 MIN;D7
  20. DOBUTAMINE [Concomitant]
     Active Substance: DOBUTAMINE HYDROCHLORIDE
     Indication: Hypoxic-ischaemic encephalopathy
     Dosage: 20 UG/KG/MIN
     Route: 042
  21. DOPAMINE [Concomitant]
     Active Substance: DOPAMINE HYDROCHLORIDE
     Indication: Hypoxic-ischaemic encephalopathy
     Dosage: 20 UG/KG/MIN
     Route: 042
  22. NITRIC OXIDE [Concomitant]
     Active Substance: NITRIC OXIDE
     Indication: Hypoxic-ischaemic encephalopathy
     Dosage: UNK
     Route: 055
  23. AMPICILLIN [Concomitant]
     Active Substance: AMPICILLIN
     Indication: Sepsis
     Dosage: UNK
  24. HYDROCORTISONE [Concomitant]
     Active Substance: HYDROCORTISONE
     Indication: Hypoxic-ischaemic encephalopathy
     Dosage: UNK
  25. GENTAMICIN [Concomitant]
     Active Substance: GENTAMICIN
     Indication: Sepsis
     Dosage: UNK
  26. CEFOTAXIME [Concomitant]
     Active Substance: CEFOTAXIME SODIUM
     Indication: Sepsis
     Dosage: UNK
  27. VASOPRESSIN [Concomitant]
     Active Substance: VASOPRESSIN
     Indication: Hypoxic-ischaemic encephalopathy
     Dosage: 80 MILLIUNITS/KG/HOUR
  28. FRESH FROZEN PLASMA [Concomitant]
     Active Substance: HUMAN PLASMA
     Indication: Coagulopathy
     Dosage: 30 ML/ KG

REACTIONS (10)
  - Pulmonary haemorrhage neonatal [Recovering/Resolving]
  - Atelectasis neonatal [Recovering/Resolving]
  - Intraventricular haemorrhage neonatal [Unknown]
  - Pulmonary hypertension [Unknown]
  - Hypervolaemia [Unknown]
  - Neonatal cardiac failure [Unknown]
  - Ventricular dysfunction [Unknown]
  - Bradycardia neonatal [Unknown]
  - Enterobacter pneumonia [Recovering/Resolving]
  - Newborn persistent pulmonary hypertension [Unknown]
